FAERS Safety Report 18384010 (Version 4)
Quarter: 2021Q1

REPORT INFORMATION
  Report Type: Spontaneous
  Country: FR (occurrence: FR)
  Receive Date: 20201014
  Receipt Date: 20210115
  Transmission Date: 20210419
  Serious: Yes (Hospitalization, Other)
  Sender: FDA-Public Use
  Company Number: FR-JNJFOC-20201019680

PATIENT
  Age: 41 Year
  Sex: Male
  Weight: 90 kg

DRUGS (4)
  1. TREMFYA [Suspect]
     Active Substance: GUSELKUMAB
  2. TREMFYA [Suspect]
     Active Substance: GUSELKUMAB
     Indication: PSORIASIS
     Route: 058
     Dates: start: 20200212
  3. COVERAM [Concomitant]
     Active Substance: AMLODIPINE\PERINDOPRIL
     Indication: HYPERTENSION
     Dates: start: 20200423
  4. TREMFYA [Suspect]
     Active Substance: GUSELKUMAB

REACTIONS (3)
  - Myocardial infarction [Recovered/Resolved]
  - Hypertriglyceridaemia [Unknown]
  - Diabetes mellitus [Unknown]

NARRATIVE: CASE EVENT DATE: 202006
